FAERS Safety Report 4893688-2 (Version None)
Quarter: 2006Q1

REPORT INFORMATION
  Report Type: 
  Country: None (occurrence: None)
  Receive Date: 20060124
  Receipt Date: 20060113
  Transmission Date: 20060701
  Serious: Yes (Other)
  Sender: FDA-Public Use
  Company Number: 2006008265

PATIENT
  Sex: Male

DRUGS (2)
  1. LYRICA [Suspect]
     Indication: ILL-DEFINED DISORDER
     Dosage: ORAL
     Route: 048
  2. MORPHINE [Concomitant]

REACTIONS (2)
  - CONVULSION [None]
  - RENAL FAILURE ACUTE [None]
